FAERS Safety Report 9345405 (Version 1)
Quarter: 2013Q2

REPORT INFORMATION
  Report Type: Spontaneous
  Country: SE (occurrence: SE)
  Receive Date: 20130613
  Receipt Date: 20130613
  Transmission Date: 20140414
  Serious: Yes (Other)
  Sender: FDA-Public Use
  Company Number: SE-AMGEN-SWESP2013038325

PATIENT
  Age: 51 Year
  Sex: Female

DRUGS (6)
  1. ENBREL [Suspect]
     Indication: RHEUMATOID ARTHRITIS
     Dosage: 50 MG, WEEKLY
     Route: 058
     Dates: start: 20101021
  2. METHOTREXATE [Concomitant]
     Dosage: 20 MG, WEEKLY
     Dates: start: 20100317
  3. FOLACIN                            /00024201/ [Concomitant]
     Dosage: 5 MG, 1X/DAY
     Dates: start: 20070529
  4. BETOLVEX                           /00056201/ [Concomitant]
     Dosage: 1 MG, 1X/DAY
     Dates: start: 20070619
  5. OMEPRAZOL                          /00661201/ [Concomitant]
     Dosage: 20 MG, 1X/DAY
     Dates: start: 20090512
  6. ALVEDON [Concomitant]
     Dosage: 500 MG, AS NEEDED
     Dates: start: 20071002

REACTIONS (3)
  - Anosmia [Not Recovered/Not Resolved]
  - Ageusia [Not Recovered/Not Resolved]
  - Nasopharyngitis [Unknown]
